FAERS Safety Report 18349769 (Version 1)
Quarter: 2020Q4

REPORT INFORMATION
  Report Type: Spontaneous
  Country: BR (occurrence: BR)
  Receive Date: 20201006
  Receipt Date: 20201006
  Transmission Date: 20210114
  Serious: Yes (Hospitalization)
  Sender: FDA-Public Use
  Company Number: BR-BAXTER-2020BAX020062

PATIENT
  Age: 70 Year
  Sex: Female
  Weight: 55.1 kg

DRUGS (12)
  1. CLORETO DE S?DIO - BAXTER [Suspect]
     Active Substance: SODIUM CHLORIDE
     Indication: MEDICATION DILUTION
     Dosage: EVERY 21 DAYS, GENUXAL 876 MG + 0.9% SODIUM CHLORIDE 250 ML WITH INFUSION TIME OF 30 MINUTES
     Route: 042
     Dates: start: 20200902
  2. FOSAPREPITANT [Concomitant]
     Active Substance: FOSAPREPITANT
     Indication: PREMEDICATION
     Route: 065
  3. CIMETIDINE [Concomitant]
     Active Substance: CIMETIDINE
     Indication: PREMEDICATION
     Route: 065
  4. ESCITALOPRAM [Concomitant]
     Active Substance: ESCITALOPRAM OXALATE
     Indication: PRODUCT USED FOR UNKNOWN INDICATION
     Route: 048
  5. GENUXAL [Suspect]
     Active Substance: CYCLOPHOSPHAMIDE
     Indication: BREAST CANCER
     Dosage: EVERY 21 DAYS, GENUXAL 876 MG + 0.9% SODIUM CHLORIDE 250 ML WITH INFUSION TIME OF 30 MINUTES
     Route: 042
     Dates: start: 20200902
  6. ROSUVASTATIN. [Concomitant]
     Active Substance: ROSUVASTATIN
     Indication: PRODUCT USED FOR UNKNOWN INDICATION
     Route: 048
  7. DEXLANSOPRAZOLE [Concomitant]
     Active Substance: DEXLANSOPRAZOLE
     Indication: PRODUCT USED FOR UNKNOWN INDICATION
     Route: 048
  8. DEXAMETHASONE. [Concomitant]
     Active Substance: DEXAMETHASONE
     Indication: PREMEDICATION
     Route: 065
  9. CLORETO DE S?DIO - BAXTER [Suspect]
     Active Substance: SODIUM CHLORIDE
     Dosage: EVERY 21 DAYS, DOCELIBBS 109.5 MG + 0.9% SODIUM CHLORIDE 250 ML IN 1 HOUR INFUSION TIME
     Route: 042
     Dates: start: 20200902
  10. DOCELIBBS [Suspect]
     Active Substance: DOCETAXEL
     Indication: BREAST CANCER
     Dosage: EVERY 21 DAYS, DOCELIBBS 109.5 MG + 0.9% SODIUM CHLORIDE 250 ML IN 1 HOUR INFUSION TIME
     Route: 042
     Dates: start: 20200902
  11. DIPHENHYDRAMINE. [Concomitant]
     Active Substance: DIPHENHYDRAMINE
     Indication: PREMEDICATION
     Route: 065
  12. VITAMIN D AND CALCIUM [Concomitant]
     Indication: PRODUCT USED FOR UNKNOWN INDICATION
     Route: 048

REACTIONS (2)
  - Diarrhoea [Recovered/Resolved]
  - Neutropenia [Recovered/Resolved]

NARRATIVE: CASE EVENT DATE: 20200907
